FAERS Safety Report 15390239 (Version 2)
Quarter: 2021Q3

REPORT INFORMATION
  Report Type: Spontaneous
  Country: DE (occurrence: DE)
  Receive Date: 20180917
  Receipt Date: 20210901
  Transmission Date: 20211014
  Serious: Yes (Congenital Anomaly)
  Sender: FDA-Public Use
  Company Number: DE-AUROBINDO-AUR-APL-2018-046031

PATIENT
  Age: 1 Day
  Sex: Female
  Weight: 2.52 kg

DRUGS (7)
  1. TEGRETAL [Concomitant]
     Active Substance: CARBAMAZEPINE
     Indication: GENERALISED TONIC-CLONIC SEIZURE
     Dosage: 1200 [MG/D ]/ 400?1200 MG/D
     Route: 064
     Dates: start: 20160929, end: 20161117
  2. FOLSAEURE [Concomitant]
     Active Substance: FOLIC ACID
     Indication: PROPHYLAXIS OF NEURAL TUBE DEFECT
     Dosage: 5 MILLIGRAM, DAILY (PRECONC)
     Route: 064
     Dates: start: 20160307, end: 20161117
  3. FRISIUM [Concomitant]
     Active Substance: CLOBAZAM
     Indication: GENERALISED TONIC-CLONIC SEIZURE
     Dosage: 5 MILLIGRAM, DAILY
     Route: 064
     Dates: start: 20160928, end: 20161006
  4. DIAZEPAM. [Concomitant]
     Active Substance: DIAZEPAM
     Indication: GENERALISED TONIC-CLONIC SEIZURE
     Dosage: UNK
     Route: 064
     Dates: start: 20160920, end: 20160928
  5. LAMOTRIGINE. [Suspect]
     Active Substance: LAMOTRIGINE
     Indication: GENERALISED TONIC-CLONIC SEIZURE
     Dosage: 400 [MG/D ]/ INITIAL 200 MG/D, DOSAGE INCREASE TO 400 MG/D OVER WEEKS
     Route: 064
     Dates: start: 20160307, end: 20161117
  6. JODTHYROX [Concomitant]
     Active Substance: LEVOTHYROXINE SODIUM\POTASSIUM IODIDE
     Indication: HYPOTHYROIDISM
     Dosage: 100 [?G/D ] / 131 [?G/D ]
     Route: 064
     Dates: start: 20160307, end: 20161117
  7. AMPICILLIN [Concomitant]
     Active Substance: AMPICILLIN
     Indication: STREPTOCOCCUS TEST POSITIVE
     Dosage: UNK
     Route: 064
     Dates: start: 20161117, end: 20161117

REACTIONS (2)
  - Atrial septal defect [Recovered/Resolved]
  - Foetal exposure during pregnancy [Unknown]

NARRATIVE: CASE EVENT DATE: 20161117
